FAERS Safety Report 7826812-X (Version None)
Quarter: 2011Q4

REPORT INFORMATION
  Report Type: 
  Country: None (occurrence: None)
  Receive Date: 20111020
  Receipt Date: 20111012
  Transmission Date: 20120403
  Serious: Yes (Other)
  Sender: FDA-Public Use
  Company Number: DE-ABBOTT-11P-062-0863627-00

PATIENT
  Sex: Female
  Weight: 74 kg

DRUGS (2)
  1. KALETRA [Suspect]
     Indication: HIV INFECTION
     Dosage: 800/200MG ONCE DAILY
     Route: 048
     Dates: start: 20100121
  2. ABACAVIR SULFATE AND LAMIVUDINE [Concomitant]
     Indication: HIV INFECTION
     Dosage: 600/900MG ONCE DAILY
     Route: 048
     Dates: start: 20100818

REACTIONS (1)
  - PSYCHOTIC DISORDER [None]
